FAERS Safety Report 5520670-4 (Version None)
Quarter: 2007Q4

REPORT INFORMATION
  Report Type: 
  Country: None (occurrence: None)
  Receive Date: 20071119
  Receipt Date: 20071106
  Transmission Date: 20080405
  Serious: Yes (Other)
  Sender: FDA-Public Use
  Company Number: US-PFIZER INC-2007094042

PATIENT

DRUGS (1)
  1. LYRICA [Suspect]

REACTIONS (2)
  - EXTRAPYRAMIDAL DISORDER [None]
  - PARKINSONISM [None]
